FAERS Safety Report 10334770 (Version 1)
Quarter: 2014Q3

REPORT INFORMATION
  Report Type: Report from Study
  Country: AU (occurrence: AU)
  Receive Date: 20140723
  Receipt Date: 20140723
  Transmission Date: 20150326
  Serious: Yes (Hospitalization)
  Sender: FDA-Public Use
  Company Number: AU-MYLANLABS-2014S1016624

PATIENT
  Age: 90 Year
  Sex: Male

DRUGS (1)
  1. METFORMIN [Suspect]
     Active Substance: METFORMIN HYDROCHLORIDE
     Dosage: 2000 MG/DAY
     Route: 065

REACTIONS (4)
  - Lactic acidosis [Recovered/Resolved]
  - Decreased appetite [Unknown]
  - Oliguria [Unknown]
  - Dehydration [Unknown]
